FAERS Safety Report 4909350-3 (Version None)
Quarter: 2006Q1

REPORT INFORMATION
  Report Type: 
  Country: None (occurrence: None)
  Receive Date: 20060213
  Receipt Date: 20060109
  Transmission Date: 20060701
  Serious: No
  Sender: FDA-Public Use
  Company Number: B0406127A

PATIENT
  Age: 28 Year
  Sex: Female

DRUGS (5)
  1. ROPINIROLE [Suspect]
     Indication: RESTLESS LEGS SYNDROME
     Route: 048
     Dates: start: 20051223
  2. CERAZETTE [Concomitant]
     Indication: CONTRACEPTION
     Dosage: 1TAB PER DAY
     Route: 048
  3. MODANE [Concomitant]
     Route: 048
  4. EDUCTYL [Concomitant]
     Route: 054
  5. TRAMADOL [Concomitant]
     Route: 048

REACTIONS (1)
  - MENORRHAGIA [None]
